FAERS Safety Report 7793792-5 (Version None)
Quarter: 2011Q4

REPORT INFORMATION
  Report Type: 
  Country: None (occurrence: None)
  Receive Date: 20111003
  Receipt Date: 20110926
  Transmission Date: 20120403
  Serious: Yes (Hospitalization, Other)
  Sender: FDA-Public Use
  Company Number: PHHY2011EC85700

PATIENT
  Age: 61 Year
  Sex: Female

DRUGS (5)
  1. DIOVAN [Suspect]
     Dosage: 1 DF (320 MG), DAILY
     Route: 048
  2. INSULIN [Concomitant]
  3. GLYBURIDE [Concomitant]
  4. GALVUS MET [Suspect]
     Indication: DIABETES MELLITUS
     Dosage: 1 DF, DAILY
     Route: 048
     Dates: start: 20110601
  5. DIOVAN [Suspect]
     Indication: HYPERTENSION
     Dosage: 1 DF (160 MG), DAILY
     Route: 048

REACTIONS (3)
  - FLUID RETENTION [None]
  - DIABETES MELLITUS [None]
  - LUNG DISORDER [None]
